FAERS Safety Report 9480956 (Version 1)
Quarter: 2013Q3

REPORT INFORMATION
  Report Type: Spontaneous
  Country: US (occurrence: US)
  Receive Date: 20130828
  Receipt Date: 20130828
  Transmission Date: 20140515
  Serious: Yes (Hospitalization)
  Sender: FDA-Public Use
  Company Number: US-AMGEN-KDL142872

PATIENT
  Age: 69 Year
  Sex: Female

DRUGS (2)
  1. ENBREL [Suspect]
     Indication: PSORIATIC ARTHROPATHY
     Dosage: 25 MG, 2 TIMES/WK
     Route: 058
     Dates: start: 20040901, end: 20050415
  2. ENBREL [Suspect]
     Indication: PSORIASIS

REACTIONS (6)
  - Brucellosis [Unknown]
  - Loss of consciousness [Unknown]
  - Cardiac disorder [Unknown]
  - Renal disorder [Unknown]
  - Blood potassium increased [Unknown]
  - Asthenia [Unknown]
